FAERS Safety Report 9515791 (Version 1)
Quarter: 2013Q3

REPORT INFORMATION
  Report Type: Spontaneous
  Country: BE (occurrence: BE)
  Receive Date: 20130911
  Receipt Date: 20130911
  Transmission Date: 20140515
  Serious: Yes (Hospitalization)
  Sender: FDA-Public Use
  Company Number: BE-ABBOTT-13X-013-1144696-00

PATIENT
  Age: 22 Month
  Sex: Male

DRUGS (1)
  1. DEPAKINE CHRONO [Suspect]
     Indication: PRODUCT USED FOR UNKNOWN INDICATION
     Dosage: 1 DOSAGE FORM; ONCE, EXTENDED RELEASE
     Route: 048
     Dates: start: 20130604, end: 20130604

REACTIONS (1)
  - Accidental exposure to product by child [Recovered/Resolved]
